FAERS Safety Report 9318124 (Version 1)
Quarter: 2013Q2

REPORT INFORMATION
  Report Type: Spontaneous
  Country: US (occurrence: US)
  Receive Date: 20130530
  Receipt Date: 20130530
  Transmission Date: 20140414
  Serious: No
  Sender: FDA-Public Use
  Company Number: US-NOVEN-12US005608

PATIENT
  Age: 15 Year
  Sex: Male

DRUGS (1)
  1. DAYTRANA [Suspect]
     Indication: PRODUCT USED FOR UNKNOWN INDICATION
     Dosage: 30MG X2
     Route: 062

REACTIONS (2)
  - Wrong technique in drug usage process [None]
  - No adverse event [Not Recovered/Not Resolved]
